FAERS Safety Report 21665314 (Version 2)
Quarter: 2023Q2

REPORT INFORMATION
  Report Type: Spontaneous
  Country: US (occurrence: US)
  Receive Date: 20221201
  Receipt Date: 20230405
  Transmission Date: 20230721
  Serious: No
  Sender: FDA-Public Use
  Company Number: US-RECORDATI-2022004870

PATIENT

DRUGS (9)
  1. ISTURISA [Suspect]
     Active Substance: OSILODROSTAT PHOSPHATE
     Indication: Pituitary-dependent Cushing^s syndrome
     Dosage: 1 MILLIGRAM, BID
     Dates: start: 202204, end: 202204
  2. ISTURISA [Suspect]
     Active Substance: OSILODROSTAT PHOSPHATE
     Dosage: 2 MILLIGRAM, BID
     Route: 048
     Dates: start: 20220402, end: 2022
  3. ISTURISA [Suspect]
     Active Substance: OSILODROSTAT PHOSPHATE
     Dosage: BID, 5MG IN THE MORNING AND 10MG AT NIGHT
     Route: 048
     Dates: start: 2022
  4. ISTURISA [Suspect]
     Active Substance: OSILODROSTAT PHOSPHATE
     Dosage: 20 MILLIGRAM DAILY
     Dates: start: 202209, end: 202303
  5. ISTURISA [Suspect]
     Active Substance: OSILODROSTAT PHOSPHATE
     Dosage: 15 MILLIGRAM DAILY
     Dates: start: 20230312
  6. LEVOTHYROXINE [Concomitant]
     Active Substance: LEVOTHYROXINE
     Indication: Hypothyroidism
     Dosage: SMALLER DOSE
     Route: 048
  7. LEVOTHYROXINE [Concomitant]
     Active Substance: LEVOTHYROXINE
     Dosage: 1 DOSAGE FORM, QD
     Route: 048
     Dates: start: 202205
  8. GLUCOSAMINE + CHONDROITIN [CHONDROITIN SULFATE;GLUCOSAMINE HYDROCHLORI [Concomitant]
     Indication: Arthropathy
     Dosage: 500 MILLIGRAM, QD
  9. ADVIL [Concomitant]
     Active Substance: IBUPROFEN
     Indication: Headache
     Dosage: 200 MILLIGRAM, PRN

REACTIONS (9)
  - Swelling face [Not Recovered/Not Resolved]
  - Hyperhidrosis [Not Recovered/Not Resolved]
  - Insomnia [Not Recovered/Not Resolved]
  - Blood pressure increased [Not Recovered/Not Resolved]
  - Cortisol increased [Unknown]
  - Headache [Not Recovered/Not Resolved]
  - Cortisol decreased [Unknown]
  - Wrong technique in product usage process [Recovered/Resolved]
  - Intentional product misuse [Recovered/Resolved]

NARRATIVE: CASE EVENT DATE: 20220101
